FAERS Safety Report 4907864-3 (Version None)
Quarter: 2006Q1

REPORT INFORMATION
  Report Type: 
  Country: None (occurrence: None)
  Receive Date: 20060210
  Receipt Date: 20060130
  Transmission Date: 20060701
  Serious: Yes (Hospitalization)
  Sender: FDA-Public Use
  Company Number: IT-BRISTOL-MYERS SQUIBB COMPANY-13263306

PATIENT
  Age: 84 Year
  Sex: Female

DRUGS (9)
  1. COUMADIN [Suspect]
     Indication: ATRIAL FIBRILLATION
     Route: 048
     Dates: start: 20050601, end: 20050902
  2. ORUDIS [Interacting]
     Indication: OSTEOARTHRITIS
     Route: 048
     Dates: start: 20050701, end: 20050902
  3. ORUDIS [Interacting]
     Route: 048
     Dates: start: 20050701, end: 20050902
  4. PROCAPTAN [Concomitant]
  5. SEQUACOR [Concomitant]
  6. SERENASE [Concomitant]
  7. KANRENOL [Concomitant]
  8. LASIX [Concomitant]
  9. ZOLOFT [Concomitant]

REACTIONS (6)
  - ANAEMIA [None]
  - DRUG INTERACTION [None]
  - GASTRIC ULCER [None]
  - HAEMATEMESIS [None]
  - INTERNATIONAL NORMALISED RATIO INCREASED [None]
  - MELAENA [None]
